FAERS Safety Report 7465944-5 (Version None)
Quarter: 2011Q2

REPORT INFORMATION
  Report Type: 
  Country: None (occurrence: None)
  Receive Date: 20110509
  Receipt Date: 20100507
  Transmission Date: 20111010
  Serious: No
  Sender: FDA-Public Use
  Company Number: US-ALEXION-A201000532

PATIENT
  Sex: Female

DRUGS (14)
  1. METHOTREXATE [Concomitant]
     Dosage: UNK
     Route: 048
  2. COLACE [Concomitant]
     Dosage: UNK
     Route: 048
  3. ZIAC                               /01166101/ [Concomitant]
     Dosage: UNK
     Route: 048
  4. SOLIRIS [Suspect]
     Indication: PAROXYSMAL NOCTURNAL HAEMOGLOBINURIA
     Dosage: 600 MG, QWX4
     Route: 042
     Dates: start: 20100128, end: 20100201
  5. TYLENOL (CAPLET) [Concomitant]
     Dosage: UNK
     Route: 048
  6. TRAZODONE [Concomitant]
     Dosage: UNK
     Route: 048
  7. CALTRATE                           /00108001/ [Concomitant]
     Dosage: UNK
     Route: 048
  8. PLAQUENIL [Concomitant]
     Dosage: UNK
     Route: 048
  9. FOLIC ACID [Concomitant]
     Dosage: UNK
     Route: 048
  10. EFFEXOR [Concomitant]
     Dosage: UNK
     Route: 048
  11. BONIVA [Concomitant]
     Dosage: UNK
     Route: 048
  12. SOLIRIS [Suspect]
     Dosage: 900 MG, Q2W
     Route: 042
     Dates: start: 20100226
  13. METAMUCIL                          /00091301/ [Concomitant]
     Dosage: UNK
     Route: 048
  14. ULTRAM [Concomitant]
     Dosage: UNK
     Route: 048

REACTIONS (3)
  - MUSCULAR WEAKNESS [None]
  - GAIT DISTURBANCE [None]
  - BALANCE DISORDER [None]
